FAERS Safety Report 5450025-2 (Version None)
Quarter: 2007Q3

REPORT INFORMATION
  Report Type: 
  Country: None (occurrence: None)
  Receive Date: 20070912
  Receipt Date: 20070905
  Transmission Date: 20080115
  Serious: Yes (Hospitalization, Disabling, Other)
  Sender: FDA-Public Use
  Company Number: BR-ASTRAZENECA-2006UW18700

PATIENT
  Age: 63 Year
  Sex: Male
  Weight: 97 kg

DRUGS (4)
  1. ZOLADEX [Suspect]
     Indication: PROSTATE CANCER
     Dosage: TOOK OVER TWO YEARS
     Route: 058
  2. ZORTRIX [Concomitant]
  3. CLONAZEPAM [Concomitant]
     Indication: INSOMNIA
     Route: 048
     Dates: start: 20060101
  4. PASALIX [Concomitant]
     Indication: INSOMNIA
     Route: 048

REACTIONS (30)
  - ABDOMINAL PAIN UPPER [None]
  - ADMINISTRATION SITE REACTION [None]
  - AGITATION [None]
  - ALANINE AMINOTRANSFERASE INCREASED [None]
  - ALOPECIA [None]
  - AMNESIA [None]
  - ASPARTATE AMINOTRANSFERASE INCREASED [None]
  - BACK PAIN [None]
  - BALANCE DISORDER [None]
  - BLOOD PRESSURE INCREASED [None]
  - CHOLELITHIASIS [None]
  - DYSGEUSIA [None]
  - FEAR [None]
  - FOOT FRACTURE [None]
  - GAIT DISTURBANCE [None]
  - HEADACHE [None]
  - HOT FLUSH [None]
  - INSOMNIA [None]
  - LIBIDO DECREASED [None]
  - METASTASES TO BONE [None]
  - NEPHROLITHIASIS [None]
  - PAIN IN EXTREMITY [None]
  - PANIC DISORDER [None]
  - PROSTATITIS [None]
  - SKIN DISCOLOURATION [None]
  - UNEVALUABLE EVENT [None]
  - URETHRAL DISORDER [None]
  - URINARY TRACT PAIN [None]
  - WEIGHT DECREASED [None]
  - WEIGHT INCREASED [None]
